FAERS Safety Report 9739351 (Version 3)
Quarter: 2014Q1

REPORT INFORMATION
  Report Type: Spontaneous
  Country: US (occurrence: US)
  Receive Date: 20131209
  Receipt Date: 20140121
  Transmission Date: 20141002
  Serious: Yes (Death, Other)
  Sender: FDA-Public Use
  Company Number: US-MERCK-1312USA000957

PATIENT
  Age: 83 Year
  Sex: Male

DRUGS (9)
  1. NOXAFIL [Suspect]
     Indication: LUNG INFECTION
     Dosage: UNK
     Route: 048
     Dates: start: 201310
  2. ALBUTEROL [Concomitant]
  3. SPIRIVA [Concomitant]
  4. SYMBICORT [Concomitant]
  5. ALLOPURINOL [Concomitant]
  6. FUROSEMIDE [Concomitant]
  7. PEPCID [Concomitant]
  8. LEVOFLOXACIN [Concomitant]
  9. KLOR-CON [Concomitant]

REACTIONS (1)
  - Lymphoma [Fatal]
